FAERS Safety Report 7426768-8 (Version None)
Quarter: 2011Q2

REPORT INFORMATION
  Report Type: 
  Country: None (occurrence: None)
  Receive Date: 20110415
  Receipt Date: 20110415
  Transmission Date: 20111010
  Serious: No
  Sender: FDA-Public Use
  Company Number: None

PATIENT
  Age: 67 Year
  Sex: Female
  Weight: 97.0698 kg

DRUGS (1)
  1. NIZATIDINE [Suspect]
     Indication: BARRETT'S OESOPHAGUS
     Dosage: 150MG BID PO (PT STATES REACTED AFTER TAKING FIRST PILL)
     Route: 048

REACTIONS (2)
  - RASH [None]
  - PRODUCT SUBSTITUTION ISSUE [None]
